FAERS Safety Report 9130983 (Version 2)
Quarter: 2013Q2

REPORT INFORMATION
  Report Type: Spontaneous
  Country: US (occurrence: US)
  Receive Date: 20130301
  Receipt Date: 20130417
  Transmission Date: 20140414
  Serious: Yes (Death, Hospitalization)
  Sender: FDA-Public Use
  Company Number: US-AMGEN-USASP2013012931

PATIENT
  Age: 91 Year
  Sex: Female
  Weight: 76.64 kg

DRUGS (2)
  1. PROLIA [Suspect]
     Indication: SENILE OSTEOPOROSIS
     Dosage: 60 MG, Q6MO
     Route: 058
     Dates: start: 20110209
  2. PROLIA [Suspect]
     Dosage: 60 MG, Q6MO
     Route: 058
     Dates: start: 20110822

REACTIONS (3)
  - Death [Fatal]
  - Chest pain [Unknown]
  - Aortic aneurysm rupture [Unknown]
